FAERS Safety Report 8291599-6 (Version None)
Quarter: 2012Q2

REPORT INFORMATION
  Report Type: 
  Country: None (occurrence: None)
  Receive Date: 20120417
  Receipt Date: 20120409
  Transmission Date: 20120825
  Serious: Yes (Hospitalization)
  Sender: FDA-Public Use
  Company Number: AU-JNJFOC-20120313437

PATIENT
  Sex: Female
  Weight: 84 kg

DRUGS (1)
  1. REMICADE [Suspect]
     Indication: RHEUMATOID ARTHRITIS
     Route: 042
     Dates: start: 20090420, end: 20100428

REACTIONS (5)
  - STAPHYLOCOCCAL INFECTION [None]
  - OSTEOMYELITIS [None]
  - LOSS OF CONSCIOUSNESS [None]
  - CERVICAL VERTEBRAL FRACTURE [None]
  - ESCHERICHIA INFECTION [None]
